FAERS Safety Report 24104979 (Version 2)
Quarter: 2024Q3

REPORT INFORMATION
  Report Type: Spontaneous
  Country: HU (occurrence: HU)
  Receive Date: 20240717
  Receipt Date: 20240801
  Transmission Date: 20241017
  Serious: Yes (Other)
  Sender: PFIZER
  Company Number: HU-PFIZER INC-PV202400092402

PATIENT
  Age: 51 Year
  Sex: Male
  Weight: 65 kg

DRUGS (3)
  1. MEDROL [Suspect]
     Active Substance: METHYLPREDNISOLONE
     Indication: Bell^s palsy
     Dosage: 64 MG/DAY AT FIRST, THEN HALVED EVERY 3 DAYS
     Route: 048
     Dates: start: 202406, end: 202406
  2. MEDROL [Suspect]
     Active Substance: METHYLPREDNISOLONE
     Dosage: HALVED EVERY 3 DAYS
     Route: 048
     Dates: start: 202406, end: 20240627
  3. ALFUZOSIN [Concomitant]
     Active Substance: ALFUZOSIN
     Indication: Prostatomegaly
     Dosage: 10 MG, 1X/DAY

REACTIONS (5)
  - Haematochezia [Not Recovered/Not Resolved]
  - Tinnitus [Recovering/Resolving]
  - Diarrhoea [Recovered/Resolved]
  - Gait disturbance [Not Recovered/Not Resolved]
  - Off label use [Recovered/Resolved]

NARRATIVE: CASE EVENT DATE: 20240101
